FAERS Safety Report 8085378 (Version 5)
Quarter: 2014Q1

REPORT INFORMATION
  Report Type: Spontaneous
  Country: US (occurrence: US)
  Receive Date: 20110811
  Receipt Date: 20140117
  Transmission Date: 20141002
  Serious: Yes (Other)
  Sender: FDA-Public Use
  Company Number: US-BAYER-2011-070508

PATIENT
  Age: 23 Year
  Sex: Female
  Weight: 89 kg

DRUGS (8)
  1. OCELLA [Suspect]
     Indication: ORAL CONTRACEPTION
     Dosage: UNK
     Dates: start: 200902, end: 200908
  2. NASONEX [Concomitant]
     Dosage: 50 UNK, UNK
     Route: 055
     Dates: start: 20090217
  3. LORATADINE [Concomitant]
     Dosage: 10 MG, UNK
     Route: 048
     Dates: start: 20090217, end: 20090528
  4. AMOXICILLIN [Concomitant]
     Dosage: 500 MG, UNK
     Route: 048
     Dates: start: 20090218
  5. HYDROCODONE W/APAP [Concomitant]
     Dosage: UNK
     Route: 048
     Dates: start: 20090331
  6. DOXEPIN [Concomitant]
     Dosage: 10 MG, UNK
     Route: 048
     Dates: start: 20090707
  7. LEXAPRO [Concomitant]
     Dosage: 20 MG, UNK
     Route: 048
     Dates: start: 20090715, end: 20090803
  8. ALPRAZOLAM [Concomitant]
     Dosage: 0.5 MG, UNK
     Route: 048
     Dates: start: 20090803

REACTIONS (10)
  - Cholecystitis chronic [None]
  - Cholecystectomy [None]
  - Pain [None]
  - Discomfort [None]
  - Mental disorder [None]
  - Emotional distress [None]
  - Depression [None]
  - Fear of death [None]
  - Nervousness [None]
  - Injury [None]
